FAERS Safety Report 9172952 (Version 1)
Quarter: 2013Q1

REPORT INFORMATION
  Report Type: Spontaneous
  Country: FR (occurrence: FR)
  Receive Date: 20130320
  Receipt Date: 20130320
  Transmission Date: 20140127
  Serious: Yes (Life-Threatening, Hospitalization)
  Sender: FDA-Public Use
  Company Number: FR-AMGEN-FRASP2013018722

PATIENT
  Age: 58 Year
  Sex: Female
  Weight: 38 kg

DRUGS (14)
  1. ENBREL [Suspect]
     Indication: RHEUMATOID ARTHRITIS
     Dosage: 25 MG, 2X/WEEK
     Route: 058
     Dates: start: 2003, end: 2006
  2. ENBREL [Suspect]
     Dosage: 50 MG, WEEKLY
     Route: 058
     Dates: start: 200808, end: 201209
  3. METOJECT [Concomitant]
     Dosage: 10 MG, WEEKLY
     Route: 058
     Dates: start: 2010
  4. CORTANCYL [Concomitant]
     Indication: RHEUMATOID ARTHRITIS
     Dosage: 5 MG, DAILY
     Route: 048
     Dates: start: 2003
  5. CORTANCYL [Concomitant]
     Dosage: 20 MG PER DAY
     Dates: start: 2006
  6. CORTANCYL [Concomitant]
     Dosage: 15 MG PER DAY
     Dates: start: 2007
  7. CORTANCYL [Concomitant]
     Dosage: 8 MG PER DAY
     Dates: start: 200808
  8. CORTANCYL [Concomitant]
     Dosage: 5 MG PER DAY
  9. HUMIRA [Concomitant]
     Indication: RHEUMATOID ARTHRITIS
     Dosage: 1 INJECTION TWICE PER WEEK
     Dates: start: 2006, end: 2007
  10. MABTHERA [Concomitant]
     Dosage: UNK
     Dates: start: 2007, end: 200808
  11. SPECIAFOLDINE [Concomitant]
     Dosage: 1 DF, WEEKLY
  12. OGAST [Concomitant]
     Dosage: 1 DF, DAILY
  13. PULMICORT [Concomitant]
     Dosage: 2 PUFFS, DAILY
  14. AERIUS                             /01398501/ [Concomitant]
     Dosage: 1 DF, DAILY

REACTIONS (4)
  - Metastases to bone [Not Recovered/Not Resolved]
  - Lung cancer metastatic [Not Recovered/Not Resolved]
  - Epiduritis [Not Recovered/Not Resolved]
  - Metastases to lymph nodes [Not Recovered/Not Resolved]
